FAERS Safety Report 4598018-1 (Version None)
Quarter: 2005Q1

REPORT INFORMATION
  Report Type: 
  Country: None (occurrence: None)
  Receive Date: 20050204
  Receipt Date: 20040826
  Transmission Date: 20050727
  Serious: Yes (Hospitalization)
  Sender: FDA-Public Use
  Company Number: PHEH2004US09283

PATIENT
  Age: 46 Year
  Sex: Male

DRUGS (3)
  1. CLOZARIL [Suspect]
     Indication: BIPOLAR DISORDER
     Dosage: 300 MG, QD, OCCLUSIVE
     Dates: start: 19940101
  2. DEPAKOTE [Concomitant]
  3. BUSPAR [Concomitant]

REACTIONS (4)
  - ANOREXIA [None]
  - INFECTION [None]
  - PANCREATITIS [None]
  - PNEUMONIA [None]
